FAERS Safety Report 8842900 (Version 1)
Quarter: 2012Q4

REPORT INFORMATION
  Report Type: 
  Country: US (occurrence: US)
  Receive Date: 20121016
  Receipt Date: 20121016
  Transmission Date: 20130627
  Serious: Yes (Hospitalization)
  Sender: FDA-Public Use
  Company Number: US-ARROW-2012-17661

PATIENT
  Age: 4 Year
  Sex: Female
  Weight: 70 kg

DRUGS (1)
  1. ENALAPRIL MALEATE (UNKNOWN) [Suspect]
     Indication: HYPERTENSION
     Dosage: 0.08 mg/kg - 0.35 mg/kg
     Route: 065

REACTIONS (1)
  - Fatigue [Recovered/Resolved]
